FAERS Safety Report 4423915-7 (Version None)
Quarter: 2004Q3

REPORT INFORMATION
  Report Type: 
  Country: None (occurrence: None)
  Receive Date: 20040805
  Receipt Date: 20040727
  Transmission Date: 20050211
  Serious: Yes (Hospitalization)
  Sender: FDA-Public Use
  Company Number: 2004225844IT

PATIENT
  Age: 56 Year
  Sex: Male

DRUGS (4)
  1. CYTARABINE [Suspect]
     Indication: ACUTE MYELOID LEUKAEMIA
     Dosage: 710 MG, QD, IV
     Route: 042
     Dates: start: 20040707, end: 20040711
  2. ZAVEDOS (IDARUBICIN HYDROCHLORIDE) POWDER, STERILE [Suspect]
     Indication: ACUTE MYELOID LEUKAEMIA
     Dosage: 20 MG, QD, IV
     Route: 042
     Dates: start: 20040707, end: 20040707
  3. THIOGUANINE [Suspect]
     Indication: ACUTE MYELOID LEUKAEMIA
     Dosage: 360 MG, QD, ORAL
     Route: 048
     Dates: start: 20040707, end: 20040711
  4. VESANOID [Concomitant]

REACTIONS (1)
  - FEBRILE NEUTROPENIA [None]
